FAERS Safety Report 7278083-3 (Version None)
Quarter: 2011Q1

REPORT INFORMATION
  Report Type: 
  Country: None (occurrence: None)
  Receive Date: 20110207
  Receipt Date: 20110131
  Transmission Date: 20110831
  Serious: Yes (Other)
  Sender: FDA-Public Use
  Company Number: US-TEVA-265350USA

PATIENT
  Sex: Male

DRUGS (4)
  1. LEUCOVORIN CALCIUM TABLET 5MG [Suspect]
     Indication: OESOPHAGEAL CARCINOMA
  2. FLUOROURACIL [Suspect]
     Indication: OESOPHAGEAL CARCINOMA
     Route: 042
  3. TRASTUZUMAB [Suspect]
     Indication: OESOPHAGEAL CARCINOMA
     Route: 042
  4. OXALIPLATIN [Suspect]
     Indication: OESOPHAGEAL CARCINOMA
     Route: 042

REACTIONS (2)
  - RETINAL HAEMORRHAGE [None]
  - PAPILLOEDEMA [None]
